FAERS Safety Report 19036828 (Version 1)
Quarter: 2021Q1

REPORT INFORMATION
  Report Type: Spontaneous
  Country: US (occurrence: US)
  Receive Date: 20210320
  Receipt Date: 20210320
  Transmission Date: 20210420
  Serious: No
  Sender: FDA-Public Use
  Company Number: None

PATIENT
  Age: 55 Year
  Sex: Male

DRUGS (1)
  1. OTEZLA [Suspect]
     Active Substance: APREMILAST

REACTIONS (12)
  - Sinusitis [None]
  - Pain [None]
  - Depression [None]
  - Muscle disorder [None]
  - Toothache [None]
  - Anxiety [None]
  - Colitis ulcerative [None]
  - Arthropathy [None]
  - Poisoning [None]
  - Nervousness [None]
  - Ear pain [None]
  - Tinea infection [None]

NARRATIVE: CASE EVENT DATE: 20200201
